FAERS Safety Report 7613147-3 (Version None)
Quarter: 2011Q3

REPORT INFORMATION
  Report Type: 
  Country: None (occurrence: None)
  Receive Date: 20110708
  Receipt Date: 20110623
  Transmission Date: 20111222
  Serious: Yes (Other)
  Sender: FDA-Public Use
  Company Number: JP-1184444

PATIENT
  Age: 83 Year
  Sex: Male
  Weight: 51 kg

DRUGS (3)
  1. KARI UNI [Concomitant]
  2. TRAVATAN Z [Suspect]
     Indication: GLAUCOMA
     Dosage: (1 GTT QD OPHTHALMIC)
     Route: 047
     Dates: start: 20101202, end: 20101209
  3. HYALEIN [Concomitant]

REACTIONS (3)
  - CORNEAL DISORDER [None]
  - VISUAL IMPAIRMENT [None]
  - VISUAL ACUITY REDUCED [None]
